FAERS Safety Report 17488488 (Version 1)
Quarter: 2020Q1

REPORT INFORMATION
  Report Type: Spontaneous
  Country: US (occurrence: US)
  Receive Date: 20200302
  Receipt Date: 20200302
  Transmission Date: 20200409
  Serious: Yes (Hospitalization, Disabling)
  Sender: FDA-Public Use
  Company Number: None

PATIENT
  Age: 34 Year
  Sex: Female
  Weight: 56.7 kg

DRUGS (2)
  1. PRENATAL MULTIVITAMINS [Concomitant]
     Active Substance: VITAMINS
  2. MIRENA [Suspect]
     Active Substance: LEVONORGESTREL
     Dates: start: 20130201, end: 20191122

REACTIONS (5)
  - Presyncope [None]
  - Blood oestrogen decreased [None]
  - Vomiting [None]
  - Fatigue [None]
  - Complication of device removal [None]

NARRATIVE: CASE EVENT DATE: 20200218
